FAERS Safety Report 4449719-7 (Version None)
Quarter: 2004Q3

REPORT INFORMATION
  Report Type: 
  Country: None (occurrence: None)
  Receive Date: 20040913
  Receipt Date: 20040827
  Transmission Date: 20050211
  Serious: Yes (Life-Threatening, Hospitalization)
  Sender: FDA-Public Use
  Company Number: SP00340

PATIENT
  Age: 74 Year
  Sex: Male
  Weight: 84 kg

DRUGS (4)
  1. COLAZAL [Suspect]
     Indication: COLITIS ULCERATIVE
     Dosage: 6.75 G/DAY (2.25G/TID), ORAL
     Route: 048
     Dates: start: 20040704, end: 20040827
  2. CARDIZEM [Concomitant]
  3. IMDUR [Concomitant]
  4. INSULIN [Concomitant]

REACTIONS (6)
  - CHEST PAIN [None]
  - HAEMATEMESIS [None]
  - PNEUMONIA [None]
  - PULMONARY HAEMORRHAGE [None]
  - PYREXIA [None]
  - RESPIRATORY FAILURE [None]
